FAERS Safety Report 10912669 (Version 1)
Quarter: 2015Q1

REPORT INFORMATION
  Report Type: Spontaneous
  Country: US (occurrence: None)
  Receive Date: 20150310
  Receipt Date: 20150310
  Transmission Date: 20150721
  Serious: No
  Sender: FDA-Public Use
  Company Number: None

PATIENT
  Age: 74 Year
  Sex: Female
  Weight: 72.58 kg

DRUGS (4)
  1. SPIRIVA [Suspect]
     Active Substance: TIOTROPIUM BROMIDE MONOHYDRATE
     Indication: DYSPNOEA
     Dosage: 2 PUFFS 1X EVERY 24 HRS
     Route: 055
     Dates: start: 20131212, end: 20131231
  2. CENTRUM SILVER [Concomitant]
     Active Substance: VITAMINS
  3. SPIRIVA [Suspect]
     Active Substance: TIOTROPIUM BROMIDE MONOHYDRATE
     Indication: EMPHYSEMA
     Dosage: 2 PUFFS 1X EVERY 24 HRS
     Route: 055
     Dates: start: 20131212, end: 20131231
  4. SPIRIVA [Suspect]
     Active Substance: TIOTROPIUM BROMIDE MONOHYDRATE
     Indication: CHRONIC OBSTRUCTIVE PULMONARY DISEASE
     Dosage: 2 PUFFS 1X EVERY 24 HRS
     Route: 055
     Dates: start: 20131212, end: 20131231

REACTIONS (1)
  - Neovascular age-related macular degeneration [None]

NARRATIVE: CASE EVENT DATE: 20141231
